FAERS Safety Report 10227980 (Version 2)
Quarter: 2014Q3

REPORT INFORMATION
  Report Type: Spontaneous
  Country: JP (occurrence: JP)
  Receive Date: 20140610
  Receipt Date: 20140804
  Transmission Date: 20150326
  Serious: Yes (Hospitalization)
  Sender: FDA-Public Use
  Company Number: PHHY2014JP070439

PATIENT
  Age: 56 Year
  Sex: Male

DRUGS (1)
  1. NEORAL [Suspect]
     Active Substance: CYCLOSPORINE
     Indication: DERMATITIS ATOPIC
     Dosage: 200 MG, DAILY IN A 14-WEEK CYCLE (12 WEEKS ON 2 WEEKS OFF)
     Route: 048
     Dates: start: 200810, end: 201207

REACTIONS (7)
  - Pyrexia [Unknown]
  - Lymphoma [Recovered/Resolved]
  - Blood immunoglobulin E increased [Unknown]
  - Generalised oedema [Recovered/Resolved]
  - Lymphocyte count decreased [Recovered/Resolved]
  - Dermatitis exfoliative [Recovering/Resolving]
  - Lymphadenopathy [Recovered/Resolved]

NARRATIVE: CASE EVENT DATE: 201207
